FAERS Safety Report 9611592 (Version 1)
Quarter: 2013Q4

REPORT INFORMATION
  Report Type: Spontaneous
  Country: US (occurrence: US)
  Receive Date: 20131010
  Receipt Date: 20131010
  Transmission Date: 20140711
  Serious: Yes (Hospitalization)
  Sender: FDA-Public Use
  Company Number: US-009507513-1310USA004084

PATIENT
  Sex: Female

DRUGS (3)
  1. VICTRELIS [Suspect]
     Indication: CHRONIC HEPATITIS C
     Dosage: UNK UNK, UNKNOWN
     Route: 048
     Dates: start: 20130728, end: 2013
  2. PEGASYS [Suspect]
     Dosage: 180 MICROGRAM, WEEKLY
     Route: 058
     Dates: start: 20130623, end: 2013
  3. RIBASPHERE [Suspect]
     Indication: CHRONIC HEPATITIS C
     Dosage: 1200 MG DAILY DIVIDED DOSES
     Route: 048
     Dates: start: 20130623, end: 2013

REACTIONS (13)
  - Full blood count decreased [Unknown]
  - Blood sodium decreased [Unknown]
  - Blood potassium decreased [Unknown]
  - Blood pressure diastolic decreased [Unknown]
  - Red blood cell count decreased [Unknown]
  - White blood cell count decreased [Unknown]
  - Platelet count decreased [Unknown]
  - Back pain [Unknown]
  - Dyspnoea [Unknown]
  - Pruritus [Unknown]
  - Rash [Unknown]
  - Nausea [Not Recovered/Not Resolved]
  - Weight increased [Unknown]
